FAERS Safety Report 6567580-1 (Version None)
Quarter: 2010Q1

REPORT INFORMATION
  Report Type: 
  Country: None (occurrence: None)
  Receive Date: 20100202
  Receipt Date: 20100125
  Transmission Date: 20100710
  Serious: Yes (Other)
  Sender: FDA-Public Use
  Company Number: PHHY2009IT53982

PATIENT
  Sex: Female

DRUGS (1)
  1. TEGRETOL [Suspect]
     Indication: NEURALGIA
     Dosage: 200 MG, UNK
     Route: 048
     Dates: start: 20091123, end: 20091129

REACTIONS (1)
  - ANGIOEDEMA [None]
